FAERS Safety Report 19706030 (Version 1)
Quarter: 2021Q3

REPORT INFORMATION
  Report Type: Spontaneous
  Country: FR (occurrence: FR)
  Receive Date: 20210817
  Receipt Date: 20210817
  Transmission Date: 20211014
  Serious: Yes (Hospitalization, Other)
  Sender: FDA-Public Use
  Company Number: FR-VALIDUS PHARMACEUTICALS LLC-FR-VDP-2021-000320

PATIENT
  Age: 61 Year
  Sex: Female

DRUGS (9)
  1. ONDANSETRON [Suspect]
     Active Substance: ONDANSETRON
     Indication: PREMEDICATION
     Dosage: 8 MILLIGRAM, TOTAL
     Route: 042
     Dates: start: 20210713, end: 20210713
  2. AUGMENTIN [Suspect]
     Active Substance: AMOXICILLIN\CLAVULANATE POTASSIUM
     Indication: PRODUCT USED FOR UNKNOWN INDICATION
     Dosage: 3 DF, TOTAL
     Route: 048
     Dates: start: 20210713, end: 20210713
  3. FUROSEMIDE. [Suspect]
     Active Substance: FUROSEMIDE
     Indication: ACUTE RESPIRATORY FAILURE
     Dosage: 40 MILLIGRAM, IV NOS
     Route: 042
     Dates: start: 20210713, end: 20210713
  4. CISPLATINE [Suspect]
     Active Substance: CISPLATIN
     Indication: LUNG ADENOCARCINOMA
     Dosage: 125 MILLIGRAM, TOTAL, IV NOS
     Route: 042
     Dates: start: 20210713, end: 20210713
  5. KEYTRUDA [Suspect]
     Active Substance: PEMBROLIZUMAB
     Indication: LUNG ADENOCARCINOMA
     Dosage: 200 MILLIGRAM, TOTAL, IV NOS
     Route: 042
     Dates: start: 20210713, end: 20210713
  6. PANTOPRAZOLE [Suspect]
     Active Substance: PANTOPRAZOLE
     Indication: PRODUCT USED FOR UNKNOWN INDICATION
     Dosage: 40 MILLIGRAM, TOTAL
     Route: 048
     Dates: start: 20210713, end: 20210713
  7. PEMETREXED. [Suspect]
     Active Substance: PEMETREXED
     Indication: LUNG ADENOCARCINOMA
     Dosage: 850 MG, TOTAL,IV  NOS
     Route: 042
     Dates: start: 20210713, end: 20210713
  8. METHYLPREDNISOLONE. [Suspect]
     Active Substance: METHYLPREDNISOLONE
     Indication: PREMEDICATION
     Dosage: 60 MILLIGRAM, TOTAL, IV NOS
     Route: 042
     Dates: start: 20210713, end: 20210713
  9. EMEND [Suspect]
     Active Substance: APREPITANT
     Indication: PREMEDICATION
     Dosage: 1 DF, TOTAL
     Route: 048
     Dates: start: 20210713, end: 20210713

REACTIONS (2)
  - Acute respiratory failure [Recovered/Resolved]
  - Rash pruritic [Recovered/Resolved]
